FAERS Safety Report 7918740-6 (Version None)
Quarter: 2011Q4

REPORT INFORMATION
  Report Type: 
  Country: None (occurrence: None)
  Receive Date: 20111116
  Receipt Date: 20111114
  Transmission Date: 20120403
  Serious: Yes (Other)
  Sender: FDA-Public Use
  Company Number: SE-BRISTOL-MYERS SQUIBB COMPANY-15970627

PATIENT

DRUGS (1)
  1. ABILIFY [Suspect]

REACTIONS (2)
  - CEREBROVASCULAR ACCIDENT [None]
  - PARKINSONISM [None]
